FAERS Safety Report 20467078 (Version 1)
Quarter: 2022Q1

REPORT INFORMATION
  Report Type: Spontaneous
  Country: DE (occurrence: DE)
  Receive Date: 20220214
  Receipt Date: 20220214
  Transmission Date: 20220423
  Serious: Yes (Congenital Anomaly, Other)
  Sender: FDA-Public Use
  Company Number: DE-EMBRYOTOX-202013205

PATIENT
  Age: 1 Day
  Sex: Male
  Weight: 2.08 kg

DRUGS (9)
  1. BISOPROLOL [Suspect]
     Active Substance: BISOPROLOL
     Indication: Hypertension
     Dosage: 2.5 MILLIGRAM, ONCE A DAY
     Route: 064
     Dates: start: 20201102, end: 20210720
  2. PANTOPRAZOLE [Suspect]
     Active Substance: PANTOPRAZOLE
     Indication: Gastrooesophageal reflux disease
     Dosage: 40 MILLIGRAM, ONCE A DAY
     Route: 064
     Dates: start: 20201102, end: 20210720
  3. AMITRIPTYLINE [Concomitant]
     Active Substance: AMITRIPTYLINE
     Indication: Depression
     Dosage: 25 MILLIGRAM, ONCE A DAY ( UNTIL DELIVERY?)
     Route: 064
     Dates: start: 20201102, end: 20210720
  4. LEVOTHYROXINE SODIUM [Concomitant]
     Active Substance: LEVOTHYROXINE SODIUM
     Indication: Hypothyroidism
     Dosage: 50 MICROGRAM, ONCE A DAY
     Route: 064
     Dates: start: 20201102, end: 20210720
  5. ENOXAPARIN SODIUM [Concomitant]
     Active Substance: ENOXAPARIN SODIUM
     Indication: Thrombosis prophylaxis
     Dosage: UNK
     Route: 064
     Dates: start: 20201210, end: 20210720
  6. APIXABAN [Concomitant]
     Active Substance: APIXABAN
     Indication: Thrombosis prophylaxis
     Dosage: 10 MILLIGRAM, ONCE A DAY
     Route: 064
     Dates: start: 20201102, end: 20201210
  7. PREGABALIN [Concomitant]
     Active Substance: PREGABALIN
     Indication: Facet joint syndrome
     Dosage: 125 MILLIGRAM, ONCE A DAY (50-0-75 MG/D)
     Route: 064
     Dates: start: 20201102, end: 20201210
  8. ALBUTEROL [Concomitant]
     Active Substance: ALBUTEROL
     Indication: Asthma
     Dosage: UNK UNK, AS NECESSARY (IF REQUIRED)
     Route: 064
     Dates: start: 20201102, end: 20210720
  9. DINOPROSTONE [Concomitant]
     Active Substance: DINOPROSTONE
     Indication: Labour induction
     Dosage: UNK
     Route: 064

REACTIONS (4)
  - Hypospadias [Unknown]
  - Small for dates baby [Unknown]
  - Atrial septal defect [Unknown]
  - Foetal exposure during pregnancy [Unknown]

NARRATIVE: CASE EVENT DATE: 20210701
